FAERS Safety Report 16079158 (Version 1)
Quarter: 2019Q1

REPORT INFORMATION
  Report Type: Spontaneous
  Country: US (occurrence: US)
  Receive Date: 20190315
  Receipt Date: 20190315
  Transmission Date: 20190418
  Serious: No
  Sender: FDA-Public Use
  Company Number: US-PERRIGO-19US000815

PATIENT
  Age: 47 Year
  Sex: Male
  Weight: 84.35 kg

DRUGS (5)
  1. TESTOSTERONE CYPIONATE. [Suspect]
     Active Substance: TESTOSTERONE CYPIONATE
     Indication: BLOOD TESTOSTERONE DECREASED
     Dosage: 200 MG, WEEKLY
     Route: 030
     Dates: start: 201711, end: 201809
  2. ANTIDEPRESSANTS [Concomitant]
     Active Substance: UNSPECIFIED INGREDIENT
     Indication: DEPRESSION
     Dosage: UNK
     Route: 065
     Dates: start: 2017, end: 2017
  3. DIURETICS [Concomitant]
     Active Substance: UNSPECIFIED INGREDIENT
     Indication: MENIERE^S DISEASE
     Dosage: UNK
     Route: 065
  4. MECLIZINE [Concomitant]
     Active Substance: MECLIZINE HYDROCHLORIDE
     Indication: MENIERE^S DISEASE
     Dosage: UNK
     Route: 065
  5. ALPRAZOLAM. [Concomitant]
     Active Substance: ALPRAZOLAM
     Indication: NERVOUSNESS
     Dosage: UNK
     Route: 065

REACTIONS (2)
  - Rash generalised [Recovered/Resolved]
  - Headache [Recovered/Resolved]

NARRATIVE: CASE EVENT DATE: 201711
